FAERS Safety Report 21306802 (Version 1)
Quarter: 2022Q3

REPORT INFORMATION
  Report Type: Spontaneous
  Country: CA (occurrence: CA)
  Receive Date: 20220908
  Receipt Date: 20220908
  Transmission Date: 20221026
  Serious: Yes (Hospitalization)
  Sender: FDA-Public Use
  Company Number: CA-BAXTER-2022BAX018677

PATIENT
  Age: 76 Year
  Sex: Female

DRUGS (8)
  1. CYCLOPHOSPHAMIDE [Suspect]
     Active Substance: CYCLOPHOSPHAMIDE
     Indication: Glomerulonephritis membranous
     Dosage: DISCONTINUED AFTER THREE MONTHS DUE TO POOR TOLERABILITY AND POOR EFFICACY.
     Route: 048
  2. CYCLOPHOSPHAMIDE [Suspect]
     Active Substance: CYCLOPHOSPHAMIDE
     Dosage: DISCONTINUED AFTER THREE MONTHS DUE TO POOR TOLERABILITY AND POOR EFFICACY.
     Route: 048
  3. RUXIENCE [Suspect]
     Active Substance: RITUXIMAB-PVVR
     Indication: Glomerulonephritis membranous
     Dosage: 1000 MG X 2 DOSES ON DAY 1 AND DAY 15
     Route: 042
  4. RUXIENCE [Suspect]
     Active Substance: RITUXIMAB-PVVR
     Dosage: 1000 MG,2 DOSES,ANTI-PLA2R CONVERTED FORM POSITIVE TO NEGATIVE AND REDUCTION IN PROTENIURIA
     Route: 042
  5. RUXIENCE [Suspect]
     Active Substance: RITUXIMAB-PVVR
     Dosage: 1000 MG,2 DOSES,ANTI-PLA2R CONVERTED FORM POSITIVE TO NEGATIVE AND REDUCTION IN PROTENIURIA
     Route: 042
     Dates: start: 202202
  6. CYCLOSPORINE [Suspect]
     Active Substance: CYCLOSPORINE
     Indication: Glomerulonephritis membranous
     Dosage: UNK
     Route: 065
  7. PREDNISONE [Suspect]
     Active Substance: PREDNISONE
     Indication: Glomerulonephritis membranous
     Dosage: UNK
     Route: 065
  8. PREDNISONE [Suspect]
     Active Substance: PREDNISONE
     Dosage: DISCONTINUED AFTER THREE MONTHS DUE TO POOR TOLERABILITY AND POOR EFFICACY.
     Route: 065

REACTIONS (4)
  - Generalised oedema [Unknown]
  - Drug intolerance [Unknown]
  - Drug ineffective [Unknown]
  - Proteinuria [Not Recovered/Not Resolved]
